FAERS Safety Report 15130658 (Version 1)
Quarter: 2018Q3

REPORT INFORMATION
  Report Type: Spontaneous
  Country: US (occurrence: US)
  Receive Date: 20180711
  Receipt Date: 20180711
  Transmission Date: 20181010
  Serious: No
  Sender: FDA-Public Use
  Company Number: US-ENDO PHARMACEUTICALS INC-2017-004617

PATIENT
  Sex: Male
  Weight: 96.15 kg

DRUGS (4)
  1. EDEX [Suspect]
     Active Substance: ALPROSTADIL
     Dosage: 20MCG, UNKNOWN
     Route: 065
     Dates: start: 2017
  2. EDEX [Suspect]
     Active Substance: ALPROSTADIL
     Indication: PRODUCT USED FOR UNKNOWN INDICATION
     Dosage: 10MCG, UNKNOWN
     Route: 065
     Dates: end: 2017
  3. TAMSULOSIN HCL [Concomitant]
     Active Substance: TAMSULOSIN HYDROCHLORIDE
     Indication: PRODUCT USED FOR UNKNOWN INDICATION
  4. QUINAPRIL. [Concomitant]
     Active Substance: QUINAPRIL
     Indication: HYPERTENSION
     Dosage: UNK

REACTIONS (1)
  - Injection site erythema [Recovered/Resolved]
